FAERS Safety Report 4521782-4 (Version None)
Quarter: 2005Q1

REPORT INFORMATION
  Report Type: 
  Country: None (occurrence: None)
  Receive Date: 20041207
  Receipt Date: 20041129
  Transmission Date: 20050727
  Serious: No
  Sender: FDA-Public Use
  Company Number: 2004101103

PATIENT
  Age: 57 Year
  Sex: Male
  Weight: 86.1834 kg

DRUGS (2)
  1. CAVERJECT [Suspect]
     Indication: ERECTILE DYSFUNCTION
     Dosage: 20 MCG (20 MCG, PRN
  2. ATORVASTATIN [Concomitant]

REACTIONS (4)
  - DEVICE FAILURE [None]
  - DRUG INEFFECTIVE [None]
  - FOREIGN BODY TRAUMA [None]
  - PHARMACEUTICAL PRODUCT COMPLAINT [None]
